FAERS Safety Report 5268718-9 (Version None)
Quarter: 2007Q1

REPORT INFORMATION
  Report Type: 
  Country: None (occurrence: None)
  Receive Date: 20070313
  Receipt Date: 20070228
  Transmission Date: 20070707
  Serious: Yes (Disabling)
  Sender: FDA-Public Use
  Company Number: B0461311A

PATIENT
  Age: 42 Year
  Sex: Female

DRUGS (4)
  1. IMITREX [Suspect]
     Indication: HEADACHE
     Dosage: INTRAMUSCULAR
     Route: 030
  2. PETHIDINE HYDROCHLORIDE INJECTION (MEPERIDINE HYDROCHLORIDE) [Suspect]
     Indication: HEADACHE
     Dosage: INTRAMUSCULAR
     Route: 030
  3. DIMENHYDRINATE INJECTION (DIMENHYDRINATE) [Suspect]
     Indication: HEADACHE
     Dosage: INTRAMUSCULAR
     Route: 030
  4. DIHYDROERGOTAMINE INJECTION (DIHYDROERGOTAMINE) [Suspect]
     Indication: HEADACHE
     Dosage: INTRAMUSCULAR
     Route: 030

REACTIONS (12)
  - ARTHRALGIA [None]
  - DRUG INEFFECTIVE [None]
  - FIBROSIS [None]
  - GAIT DISTURBANCE [None]
  - IMPAIRED WORK ABILITY [None]
  - JOINT CONTRACTURE [None]
  - MOBILITY DECREASED [None]
  - MUSCULOSKELETAL STIFFNESS [None]
  - MYALGIA [None]
  - MYOPATHY [None]
  - PAIN IN EXTREMITY [None]
  - SLEEP DISORDER [None]
